FAERS Safety Report 9219982 (Version 1)
Quarter: 2013Q2

REPORT INFORMATION
  Report Type: Spontaneous
  Country: JP (occurrence: JP)
  Receive Date: 20130409
  Receipt Date: 20130409
  Transmission Date: 20140414
  Serious: Yes (Other)
  Sender: FDA-Public Use
  Company Number: JP-ROCHE-1210319

PATIENT
  Age: 10 Year
  Sex: Male
  Weight: 31.8 kg

DRUGS (3)
  1. PEGASYS [Suspect]
     Indication: CHRONIC HEPATITIS C
     Route: 058
     Dates: start: 20080703, end: 20090529
  2. EURAX [Concomitant]
     Indication: RASH
     Dosage: DOSAGE IS UNCERTAIN.
     Route: 003
     Dates: start: 20080703, end: 20080718
  3. CALONAL [Concomitant]
     Indication: PYREXIA
     Route: 048
     Dates: start: 20080703, end: 20080708

REACTIONS (4)
  - Failure to thrive [Recovering/Resolving]
  - Pyrexia [Recovering/Resolving]
  - Rash [Unknown]
  - Headache [Recovering/Resolving]
